FAERS Safety Report 18748607 (Version 2)
Quarter: 2021Q4

REPORT INFORMATION
  Report Type: Report from Study
  Country: US (occurrence: US)
  Receive Date: 20210115
  Receipt Date: 20211108
  Transmission Date: 20220304
  Serious: Yes (Other)
  Sender: FDA-Public Use
  Company Number: ENDG21-00136

PATIENT
  Sex: Male

DRUGS (5)
  1. PERCOCET [Suspect]
     Active Substance: ACETAMINOPHEN\OXYCODONE HYDROCHLORIDE
     Indication: Product used for unknown indication
     Dosage: UNK UNKNOWN, UNKNOWN
     Route: 065
  2. HUMIRA [Suspect]
     Active Substance: ADALIMUMAB
     Indication: Colitis ulcerative
     Dosage: UNK UNKNOWN, UNKNOWN
     Route: 058
  3. HUMIRA [Suspect]
     Active Substance: ADALIMUMAB
     Indication: Crohn^s disease
  4. BISMUTH SUBSALYCILATE [Suspect]
     Active Substance: BISMUTH SUBSALICYLATE
     Indication: Product used for unknown indication
     Dosage: UNK UNKNOWN, UNKNOWN
     Route: 065
  5. COVID-19 vaccine [Concomitant]
     Indication: COVID-19 immunisation
     Dosage: UNK UNKNOWN, UNKNOWN
     Route: 065

REACTIONS (15)
  - Vascular rupture [Unknown]
  - Paralysis [Recovered/Resolved]
  - Chronic obstructive pulmonary disease [Unknown]
  - Condition aggravated [Unknown]
  - Skin irritation [Unknown]
  - Inflammation [Unknown]
  - Unevaluable event [Unknown]
  - Back pain [Unknown]
  - Constipation [Unknown]
  - Prostatomegaly [Unknown]
  - Faeces discoloured [Unknown]
  - Sciatica [Unknown]
  - Pain in extremity [Unknown]
  - Glaucoma [Unknown]
  - Tachycardia [Unknown]

NARRATIVE: CASE EVENT DATE: 20130101
